FAERS Safety Report 8088951-0 (Version None)
Quarter: 2012Q1

REPORT INFORMATION
  Report Type: 
  Country: None (occurrence: None)
  Receive Date: 20120128
  Receipt Date: 20110624
  Transmission Date: 20120608
  Serious: No
  Sender: FDA-Public Use
  Company Number: US-ABBOTT-11P-163-0834357-00

PATIENT
  Sex: Male

DRUGS (7)
  1. CITALOPRAM [Concomitant]
     Indication: ANXIETY
  2. DEPAKOTE [Concomitant]
     Indication: EPILEPSY
  3. KEPPRA [Concomitant]
     Indication: EPILEPSY
  4. HUMIRA [Suspect]
  5. CLONAZEPAM [Concomitant]
     Indication: INSOMNIA
  6. HUMIRA [Suspect]
     Indication: CROHN'S DISEASE
     Dosage: ON DAY ONE
     Route: 058
     Dates: start: 20110610, end: 20110610
  7. ATIVAN [Concomitant]
     Indication: INSOMNIA
     Dosage: AT BEDTIME

REACTIONS (1)
  - INJECTION SITE PAIN [None]
